FAERS Safety Report 6317382-6 (Version None)
Quarter: 2009Q3

REPORT INFORMATION
  Report Type: 
  Country: None (occurrence: None)
  Receive Date: 20090821
  Receipt Date: 20090818
  Transmission Date: 20100115
  Serious: Yes (Hospitalization)
  Sender: FDA-Public Use
  Company Number: KR-SP-2009-03561

PATIENT
  Age: 60 Year
  Sex: Female

DRUGS (1)
  1. BCG  THERAPEUTICS [Suspect]
     Indication: BLADDER CANCER
     Route: 043

REACTIONS (7)
  - ALVEOLITIS ALLERGIC [None]
  - CHEST X-RAY ABNORMAL [None]
  - COUGH [None]
  - DYSPNOEA [None]
  - PYREXIA [None]
  - RALES [None]
  - SPIROMETRY ABNORMAL [None]
